FAERS Safety Report 15013298 (Version 4)
Quarter: 2018Q4

REPORT INFORMATION
  Report Type: Report from Study
  Country: ES (occurrence: ES)
  Receive Date: 20180614
  Receipt Date: 20181224
  Transmission Date: 20190204
  Serious: Yes (Other)
  Sender: FDA-Public Use
  Company Number: ES-PFIZER INC-2018238217

PATIENT
  Age: 70 Year
  Sex: Female

DRUGS (7)
  1. AFLIBERCEPT [Suspect]
     Active Substance: AFLIBERCEPT
     Indication: COLORECTAL CANCER RECURRENT
     Dosage: 336 MG, CYCLIC (336MG, 14 CYCLES)
     Route: 042
     Dates: start: 20160804, end: 20160804
  2. NEURONTIN [Concomitant]
     Active Substance: GABAPENTIN
     Dosage: 800 MG, 2X/DAY (EVERY 12 HOURS, 1-0-1)
     Route: 048
     Dates: start: 20160804
  3. SEVIKAR [Concomitant]
     Active Substance: AMLODIPINE BESYLATE\OLMESARTAN MEDOXOMIL
     Dosage: 1 DF, 1X/DAY (1-0-0)
     Route: 048
     Dates: start: 20160804
  4. IRINOTECAN HCL [Suspect]
     Active Substance: IRINOTECAN HYDROCHLORIDE
     Indication: COLORECTAL CANCER RECURRENT
     Dosage: 275 MG, CYCLIC
     Route: 042
     Dates: start: 20160804, end: 20160804
  5. DUROGESIC [Concomitant]
     Active Substance: FENTANYL
     Dosage: EVERY 72 H
     Route: 062
     Dates: start: 20160804
  6. IRINOTECAN HCL [Suspect]
     Active Substance: IRINOTECAN HYDROCHLORIDE
     Dosage: 275 MG, CYCLIC
     Route: 042
     Dates: start: 20170511, end: 20170511
  7. AFLIBERCEPT [Suspect]
     Active Substance: AFLIBERCEPT
     Dosage: 336 MG, CYCLIC (336MG, 14 CYCLES)
     Route: 042
     Dates: start: 20170511, end: 20170511

REACTIONS (1)
  - Hepatitis [Recovered/Resolved]

NARRATIVE: CASE EVENT DATE: 20170709
